FAERS Safety Report 23308259 (Version 1)
Quarter: 2023Q4

REPORT INFORMATION
  Report Type: Spontaneous
  Country: US (occurrence: US)
  Receive Date: 20231218
  Receipt Date: 20231218
  Transmission Date: 20240109
  Serious: No
  Sender: FDA-Public Use
  Company Number: US-AMNEAL PHARMACEUTICALS-2022-AMRX-04169

PATIENT
  Sex: Female

DRUGS (1)
  1. COLESTIPOL HYDROCHLORIDE [Suspect]
     Active Substance: COLESTIPOL HYDROCHLORIDE
     Indication: Gastrointestinal disorder
     Dosage: 1 GM
     Route: 065

REACTIONS (4)
  - Gastrointestinal disorder [Unknown]
  - Product physical issue [Unknown]
  - Product storage error [Unknown]
  - Product use in unapproved indication [Unknown]
